FAERS Safety Report 25813126 (Version 2)
Quarter: 2025Q3

REPORT INFORMATION
  Report Type: Spontaneous
  Country: US (occurrence: US)
  Receive Date: 20250917
  Receipt Date: 20250918
  Transmission Date: 20251020
  Serious: No
  Sender: UROGEN PHARMA
  Company Number: US-UROGEN PHARMA LTD.-2025-UGN-000158

PATIENT

DRUGS (2)
  1. ZUSDURI [Suspect]
     Active Substance: MITOMYCIN
     Indication: Bladder transitional cell carcinoma
     Dosage: 75 MG (56 ML) INSTILLATION, ADMINISTERED VIA BLADDER INTRAVESICAL WEEKLY
     Route: 043
     Dates: start: 20250806, end: 20250806
  2. ZUSDURI [Suspect]
     Active Substance: MITOMYCIN
     Dosage: 75 MG (56 ML) INSTILLATION, ADMINISTERED VIA BLADDER INTRAVESICAL WEEKLY
     Route: 043
     Dates: start: 20250812, end: 20250812

REACTIONS (2)
  - Rash [Recovered/Resolved]
  - Pruritus [Not Recovered/Not Resolved]

NARRATIVE: CASE EVENT DATE: 20250101
